FAERS Safety Report 21713408 (Version 1)
Quarter: 2022Q4

REPORT INFORMATION
  Report Type: Spontaneous
  Country: US (occurrence: US)
  Receive Date: 20221212
  Receipt Date: 20221212
  Transmission Date: 20230113
  Serious: Yes (Hospitalization)
  Sender: FDA-Public Use
  Company Number: US-ORG100016242-2022000465

PATIENT
  Age: 35 Year
  Sex: Female

DRUGS (2)
  1. EXPAREL [Suspect]
     Active Substance: BUPIVACAINE
     Indication: Surgery
     Route: 065
  2. LIDOCAINE [Suspect]
     Active Substance: LIDOCAINE
     Indication: Surgery
     Route: 065

REACTIONS (4)
  - Tachycardia [Unknown]
  - Hypoaesthesia oral [Unknown]
  - Anxiety [Unknown]
  - Labelled drug-drug interaction medication error [Unknown]
